FAERS Safety Report 21098436 (Version 2)
Quarter: 2022Q3

REPORT INFORMATION
  Report Type: Spontaneous
  Country: DK (occurrence: DK)
  Receive Date: 20220719
  Receipt Date: 20220721
  Transmission Date: 20221026
  Serious: Yes (Other)
  Sender: FDA-Public Use
  Company Number: DK-EMA-DD-20220705-116353-173437

PATIENT
  Age: 59 Year
  Sex: Female

DRUGS (3)
  1. PRAMIPEXOLE [Suspect]
     Active Substance: PRAMIPEXOLE
     Indication: Restless legs syndrome
     Dosage: UNK
     Route: 065
     Dates: start: 2011
  2. PRAMIPEXOLE [Suspect]
     Active Substance: PRAMIPEXOLE
     Dosage: 0.36 MILLIGRAM, QD (SHE WAS GRADUALLY INCREASED TO 0.36 MG IN THE EVENING)
     Route: 065
  3. PRAMIPEXOLE [Suspect]
     Active Substance: PRAMIPEXOLE
     Dosage: 0.36 MILLIGRAM (TOOK ON RARE OCCASIONS ANOTHER 0.36 MG A FEW HOURS LATER.)
     Route: 065

REACTIONS (2)
  - Gambling disorder [Recovering/Resolving]
  - Compulsive shopping [Unknown]

NARRATIVE: CASE EVENT DATE: 20110101
